FAERS Safety Report 8523138-6 (Version None)
Quarter: 2012Q3

REPORT INFORMATION
  Report Type: 
  Country: None (occurrence: None)
  Receive Date: 20120713
  Receipt Date: 20120713
  Transmission Date: 20120928
  Serious: Yes (Hospitalization)
  Sender: FDA-Public Use
  Company Number: None

PATIENT
  Age: 60 Year
  Sex: Male
  Weight: 115.7 kg

DRUGS (1)
  1. PREDNISONE [Suspect]
     Dates: start: 20120401, end: 20120403

REACTIONS (1)
  - HYPERGLYCAEMIA [None]
